FAERS Safety Report 15284799 (Version 3)
Quarter: 2018Q3

REPORT INFORMATION
  Report Type: Spontaneous
  Country: US (occurrence: US)
  Receive Date: 20180816
  Receipt Date: 20180910
  Transmission Date: 20181010
  Serious: Yes (Death, Other)
  Sender: FDA-Public Use
  Company Number: US-PFIZER INC-2018328058

PATIENT
  Age: 58 Year
  Sex: Female

DRUGS (7)
  1. CEFTRIAXONE SODIUM. [Suspect]
     Active Substance: CEFTRIAXONE SODIUM
     Dosage: 1000 MG, SINGLE
     Route: 030
     Dates: start: 20150602, end: 20150602
  2. DEXAMETHASONE. [Concomitant]
     Active Substance: DEXAMETHASONE
     Indication: SINUSITIS
     Dosage: UNK (ONCE)
     Dates: start: 20150602, end: 20150602
  3. CEFTRIAXONE SODIUM. [Suspect]
     Active Substance: CEFTRIAXONE SODIUM
     Dosage: UNK
     Dates: start: 2015, end: 2015
  4. CEFTRIAXONE SODIUM. [Suspect]
     Active Substance: CEFTRIAXONE SODIUM
     Indication: SINUSITIS
     Dosage: UNK
     Route: 030
     Dates: start: 201410
  5. CYANOCOBALAMIN. [Concomitant]
     Active Substance: CYANOCOBALAMIN
     Indication: FATIGUE
     Dosage: 1000 UG, SINGLE (DURATION OF TREATMENT: ONE DOSE)/ONCE
     Dates: start: 20150602, end: 20150602
  6. LIDOCAINE. [Concomitant]
     Active Substance: LIDOCAINE
     Dosage: UNK (ONCE)
     Dates: start: 20150602, end: 20150602
  7. DEPO?MEDROL [Concomitant]
     Active Substance: METHYLPREDNISOLONE ACETATE
     Indication: SINUS DISORDER
     Dosage: UNK, SINGLE (DURATION OF TREATMENT: ONE DOSE)
     Dates: start: 20150602, end: 20150602

REACTIONS (3)
  - Contraindicated product administered [Fatal]
  - Cardiac arrest [Fatal]
  - Anaphylactic reaction [Fatal]

NARRATIVE: CASE EVENT DATE: 201410
